FAERS Safety Report 5833796-2 (Version None)
Quarter: 2008Q3

REPORT INFORMATION
  Report Type: 
  Country: None (occurrence: None)
  Receive Date: 20080804
  Receipt Date: 20080804
  Transmission Date: 20090109
  Serious: Yes (Death)
  Sender: FDA-Public Use
  Company Number: None

PATIENT
  Age: 51 Year
  Sex: Female
  Weight: 88.905 kg

DRUGS (5)
  1. GEODON [Suspect]
     Indication: SCHIZOAFFECTIVE DISORDER
     Dosage: 1 P.O. BID
     Route: 048
     Dates: start: 20051115, end: 20080716
  2. ZOLPIDEM [Concomitant]
  3. DIPHENHYDRAMINE HCL [Concomitant]
  4. CLONAZEPAM [Concomitant]
  5. RISPERDAL [Suspect]
     Indication: BIPOLAR DISORDER
     Dosage: 1 MG DAILY PO
     Route: 048
     Dates: start: 20071124, end: 20080715

REACTIONS (1)
  - SUDDEN CARDIAC DEATH [None]
